FAERS Safety Report 19820213 (Version 1)
Quarter: 2021Q3

REPORT INFORMATION
  Report Type: Spontaneous
  Country: US (occurrence: US)
  Receive Date: 20210909
  Receipt Date: 20210909
  Transmission Date: 20211014
  Serious: Yes (Hospitalization)
  Sender: FDA-Public Use
  Company Number: None

PATIENT
  Age: 23 Year
  Sex: Male
  Weight: 63.2 kg

DRUGS (5)
  1. RITUXIMAB (MOAB C2B8 ANTO CD20, CHIMERIC) [Suspect]
     Active Substance: RITUXIMAB
     Dates: end: 20210816
  2. CYCLOPHOSPHAMIDE. [Suspect]
     Active Substance: CYCLOPHOSPHAMIDE
     Dates: end: 20210809
  3. CYTARABINE. [Suspect]
     Active Substance: CYTARABINE
     Dates: end: 20210819
  4. MERCAPTOPURINE. [Suspect]
     Active Substance: MERCAPTOPURINE
     Dates: end: 20210822
  5. METHOTREXATE. [Suspect]
     Active Substance: METHOTREXATE
     Dates: end: 20210816

REACTIONS (9)
  - Vision blurred [None]
  - Pollakiuria [None]
  - Abdominal pain [None]
  - Headache [None]
  - Pyrexia [None]
  - Fatigue [None]
  - Photophobia [None]
  - Nausea [None]
  - Febrile neutropenia [None]

NARRATIVE: CASE EVENT DATE: 20210821
